FAERS Safety Report 15244558 (Version 1)
Quarter: 2018Q3

REPORT INFORMATION
  Report Type: Spontaneous
  Country: US (occurrence: US)
  Receive Date: 20180806
  Receipt Date: 20180806
  Transmission Date: 20181010
  Serious: No
  Sender: FDA-Public Use
  Company Number: US-GLAXOSMITHKLINE-US2018135100

PATIENT
  Age: 57 Year
  Sex: Female

DRUGS (2)
  1. NICODERM CQ [Suspect]
     Active Substance: NICOTINE
     Indication: SMOKING CESSATION THERAPY
     Dosage: UNK
  2. NICORETTE [Suspect]
     Active Substance: NICOTINE
     Indication: SMOKING CESSATION THERAPY
     Dosage: 4 MG, UNK

REACTIONS (9)
  - Adverse drug reaction [Unknown]
  - Gingival disorder [Unknown]
  - Dental caries [Unknown]
  - Nicotine dependence [Unknown]
  - Tooth injury [Unknown]
  - Mouth injury [Unknown]
  - Wrong technique in product usage process [Unknown]
  - Urticaria [Unknown]
  - Underdose [Unknown]
